FAERS Safety Report 25542089 (Version 1)
Quarter: 2025Q3

REPORT INFORMATION
  Report Type: Spontaneous
  Country: EU (occurrence: EU)
  Receive Date: 20250711
  Receipt Date: 20250711
  Transmission Date: 20251021
  Serious: Yes (Hospitalization)
  Sender: XELLIA PHARMACEUTICALS
  Company Number: None

PATIENT
  Age: 50 Year
  Sex: Female

DRUGS (3)
  1. DAPTOMYCIN [Suspect]
     Active Substance: DAPTOMYCIN
     Indication: Abdominal infection
     Dosage: 350 MG SOLUTION FOR INJECTION FOR INFUSION 1 VIAL, 700 MG EVERY 24 H
     Dates: start: 20250214, end: 20250224
  2. ERTAPENEM [Suspect]
     Active Substance: ERTAPENEM
     Indication: Abdominal infection
     Dosage: 1,000 MG SOLUTION FOR INJECTION FOR INFUSION, 1 G EVERY 24 HOURS
     Dates: start: 20250213, end: 20250311
  3. AVIBACTAM SODIUM\CEFTAZIDIME [Suspect]
     Active Substance: AVIBACTAM SODIUM\CEFTAZIDIME
     Indication: Abdominal infection
     Dosage: 2 G/0.5 G POWDER FOR CONCENTRATE FOR SOLUTION FOR INFUSION, 10 ?VIALS, 2 VIALS EVERY 8 HOURS
     Dates: start: 20250214, end: 20250311

REACTIONS (1)
  - Erythema multiforme [Recovered/Resolved]

NARRATIVE: CASE EVENT DATE: 20250322
